FAERS Safety Report 4661316-7 (Version None)
Quarter: 2005Q2

REPORT INFORMATION
  Report Type: 
  Country: None (occurrence: None)
  Receive Date: 20050427
  Receipt Date: 20050207
  Transmission Date: 20051028
  Serious: No
  Sender: FDA-Public Use
  Company Number: WAES 0502USA00758

PATIENT

DRUGS (1)
  1. EMEND [Suspect]
     Dosage: SEE IMAGE
     Route: 048

REACTIONS (1)
  - ABDOMINAL DISTENSION [None]
